FAERS Safety Report 7537093-9 (Version None)
Quarter: 2011Q2

REPORT INFORMATION
  Report Type: 
  Country: None (occurrence: None)
  Receive Date: 20110609
  Receipt Date: 20110530
  Transmission Date: 20111010
  Serious: Yes (Hospitalization, Other)
  Sender: FDA-Public Use
  Company Number: PHHY2011JP47781

PATIENT
  Age: 3 Year

DRUGS (1)
  1. TEGRETOL [Suspect]
     Dosage: 1.2 G, DAILY
     Route: 048

REACTIONS (5)
  - ALTERED STATE OF CONSCIOUSNESS [None]
  - DRUG DISPENSING ERROR [None]
  - EPILEPSY [None]
  - OTITIS MEDIA [None]
  - OVERDOSE [None]
